FAERS Safety Report 14317397 (Version 1)
Quarter: 2017Q4

REPORT INFORMATION
  Report Type: Spontaneous
  Country: CH (occurrence: CH)
  Receive Date: 20171222
  Receipt Date: 20171222
  Transmission Date: 20180321
  Serious: Yes (Hospitalization, Other)
  Sender: FDA-Public Use
  Company Number: CH-JNJFOC-20171217445

PATIENT
  Age: 81 Year
  Sex: Female

DRUGS (42)
  1. RISPERDAL [Suspect]
     Active Substance: RISPERIDONE
     Indication: ADJUSTMENT DISORDER WITH MIXED ANXIETY AND DEPRESSED MOOD
     Route: 048
     Dates: start: 20171028, end: 20171029
  2. RISPERDAL [Suspect]
     Active Substance: RISPERIDONE
     Indication: ADJUSTMENT DISORDER WITH MIXED ANXIETY AND DEPRESSED MOOD
     Route: 048
     Dates: start: 20171102, end: 20171107
  3. TORASEMIDE [Suspect]
     Active Substance: TORSEMIDE
     Indication: HYPERTENSION
     Route: 065
     Dates: start: 20171003, end: 201710
  4. TORASEMIDE [Suspect]
     Active Substance: TORSEMIDE
     Indication: HYPERTENSION
     Route: 065
     Dates: start: 20171028, end: 20171030
  5. ATORVASTATINE [Concomitant]
     Active Substance: ATORVASTATIN
     Route: 065
  6. LAXOBERON [Concomitant]
     Active Substance: SODIUM PICOSULFATE
     Route: 065
  7. SINTROM [Concomitant]
     Active Substance: ACENOCOUMAROL
     Route: 065
  8. RISPERDAL [Suspect]
     Active Substance: RISPERIDONE
     Indication: AGITATION
     Route: 048
     Dates: start: 20171005, end: 20171023
  9. RISPERDAL [Suspect]
     Active Substance: RISPERIDONE
     Indication: AGITATION
     Route: 048
     Dates: start: 20171028, end: 20171029
  10. LISINOPRIL. [Suspect]
     Active Substance: LISINOPRIL
     Indication: HYPERTENSION
     Route: 065
     Dates: start: 20171028, end: 20171030
  11. CALCIMAGON D3 [Concomitant]
     Active Substance: CALCIUM\CHOLECALCIFEROL
     Route: 065
  12. REQUIP [Concomitant]
     Active Substance: ROPINIROLE HYDROCHLORIDE
     Route: 065
  13. CIRCADIN [Concomitant]
     Active Substance: MELATONIN
     Route: 065
     Dates: start: 20171005
  14. RISPERDAL [Suspect]
     Active Substance: RISPERIDONE
     Indication: ADJUSTMENT DISORDER WITH MIXED ANXIETY AND DEPRESSED MOOD
     Dosage: 1 MG X 2 DAILY PLUS 3 X 0.25 AS NEEDED; AT HOME
     Route: 048
  15. RISPERDAL [Suspect]
     Active Substance: RISPERIDONE
     Indication: DELIRIUM
     Dosage: 1 MG X 2 DAILY PLUS 3 X 0.25 AS NEEDED; AT HOME
     Route: 048
  16. RISPERDAL [Suspect]
     Active Substance: RISPERIDONE
     Indication: ADJUSTMENT DISORDER WITH MIXED ANXIETY AND DEPRESSED MOOD
     Route: 048
     Dates: start: 20171005, end: 20171023
  17. MABTHERA [Concomitant]
     Active Substance: RITUXIMAB
     Route: 065
  18. RISPERDAL [Suspect]
     Active Substance: RISPERIDONE
     Indication: DELIRIUM
     Route: 048
     Dates: start: 20171028, end: 20171029
  19. RISPERDAL [Suspect]
     Active Substance: RISPERIDONE
     Indication: ADJUSTMENT DISORDER WITH MIXED ANXIETY AND DEPRESSED MOOD
     Route: 048
     Dates: start: 20171030, end: 20171101
  20. RISPERDAL [Suspect]
     Active Substance: RISPERIDONE
     Indication: AGITATION
     Route: 048
     Dates: start: 20171030, end: 20171101
  21. RISPERDAL [Suspect]
     Active Substance: RISPERIDONE
     Indication: AGITATION
     Route: 048
     Dates: start: 20171102, end: 20171107
  22. TORASEMIDE [Suspect]
     Active Substance: TORSEMIDE
     Indication: HYPERTENSION
     Route: 065
     Dates: start: 20171116
  23. ASPIRIN CARDIO [Concomitant]
     Active Substance: ASPIRIN
     Route: 065
  24. PREGABALIN. [Concomitant]
     Active Substance: PREGABALIN
     Route: 065
  25. NEXIUM [Concomitant]
     Active Substance: ESOMEPRAZOLE MAGNESIUM
     Route: 065
     Dates: end: 20171116
  26. DAFALGAN [Concomitant]
     Active Substance: ACETAMINOPHEN
     Route: 065
  27. METOPROLOL. [Concomitant]
     Active Substance: METOPROLOL
     Route: 065
  28. RISPERDAL [Suspect]
     Active Substance: RISPERIDONE
     Indication: DELIRIUM
     Route: 048
     Dates: start: 20171005, end: 20171023
  29. RISPERDAL [Suspect]
     Active Substance: RISPERIDONE
     Indication: DELIRIUM
     Route: 048
     Dates: start: 20171102, end: 20171107
  30. NITROGLYCERINE [Suspect]
     Active Substance: NITROGLYCERIN
     Indication: CARDIAC FAILURE ACUTE
     Dosage: 1 MG/H FOR 2 H
     Route: 040
     Dates: start: 20171028, end: 20171028
  31. CO-AMOXI [Concomitant]
     Active Substance: AMOXICILLIN\CLAVULANATE POTASSIUM
     Route: 065
     Dates: start: 20171020, end: 20171021
  32. RISPERDAL [Suspect]
     Active Substance: RISPERIDONE
     Indication: AGITATION
     Dosage: 1 MG X 2 DAILY PLUS 3 X 0.25 AS NEEDED; AT HOME
     Route: 048
  33. RISPERDAL [Suspect]
     Active Substance: RISPERIDONE
     Indication: ADJUSTMENT DISORDER WITH MIXED ANXIETY AND DEPRESSED MOOD
     Route: 048
     Dates: start: 20171108, end: 20171113
  34. CIPROFLOXACINE [Concomitant]
     Active Substance: CIPROFLOXACIN
     Route: 065
  35. RISPERDAL [Suspect]
     Active Substance: RISPERIDONE
     Indication: AGITATION
     Route: 048
     Dates: start: 20171108, end: 20171113
  36. TEMGESIC [Suspect]
     Active Substance: BUPRENORPHINE HYDROCHLORIDE
     Indication: MYALGIA
     Dosage: 0.1 MG PLUS 0.2 MG
     Route: 060
     Dates: start: 20171028, end: 20171028
  37. RISPERDAL [Suspect]
     Active Substance: RISPERIDONE
     Indication: DELIRIUM
     Route: 048
     Dates: start: 20171030, end: 20171101
  38. RISPERDAL [Suspect]
     Active Substance: RISPERIDONE
     Indication: DELIRIUM
     Route: 048
     Dates: start: 20171108, end: 20171113
  39. TORASEMIDE [Suspect]
     Active Substance: TORSEMIDE
     Indication: HYPERTENSION
     Route: 065
     Dates: start: 20171101, end: 20171114
  40. VALIUM [Suspect]
     Active Substance: DIAZEPAM
     Indication: MYALGIA
     Route: 048
     Dates: start: 20171028, end: 20171028
  41. IMUREL [Concomitant]
     Active Substance: AZATHIOPRINE SODIUM
     Route: 065
  42. CLEXANE [Concomitant]
     Active Substance: ENOXAPARIN SODIUM
     Route: 065

REACTIONS (6)
  - Abnormal behaviour [Unknown]
  - Cardiac failure [Recovered/Resolved]
  - Parkinsonism [Recovered/Resolved]
  - Somnolence [Unknown]
  - Acute kidney injury [Recovered/Resolved]
  - Disturbance in attention [Recovered/Resolved]

NARRATIVE: CASE EVENT DATE: 201710
